FAERS Safety Report 5843012-3 (Version None)
Quarter: 2008Q3

REPORT INFORMATION
  Report Type: 
  Country: None (occurrence: None)
  Receive Date: 20080808
  Receipt Date: 20080724
  Transmission Date: 20090109
  Serious: Yes (Life-Threatening, Hospitalization)
  Sender: FDA-Public Use
  Company Number: GXKR2008CA07241

PATIENT
  Age: 52 Year
  Sex: Male

DRUGS (6)
  1. DIAZEPAM [Suspect]
     Dosage: ORAL
     Route: 048
  2. ESCITALOPRAM [Suspect]
     Dosage: ORAL
     Route: 048
  3. ZOPICLONE (NGX ZOPICLONE) UNKNOWN [Suspect]
     Dosage: ORAL
     Route: 048
  4. MORPHINE [Suspect]
     Dosage: ORAL
     Route: 048
  5. LORAZEPAM [Suspect]
     Dosage: ORAL
     Route: 048
  6. OXYCODONE HYDROCHLORIDE [Suspect]
     Dosage: ORAL
     Route: 048

REACTIONS (15)
  - ACTIVATED PARTIAL THROMBOPLASTIN TIME PROLONGED [None]
  - BLOOD CALCIUM DECREASED [None]
  - BLOOD CREATINE PHOSPHOKINASE INCREASED [None]
  - BLOOD CREATININE INCREASED [None]
  - BLOOD PRESSURE DECREASED [None]
  - COMA [None]
  - DRUG SCREEN POSITIVE [None]
  - ELECTROCARDIOGRAM QT PROLONGED [None]
  - HEART RATE DECREASED [None]
  - HYPERKALAEMIA [None]
  - INTERNATIONAL NORMALISED RATIO DECREASED [None]
  - MULTIPLE DRUG OVERDOSE INTENTIONAL [None]
  - NODAL RHYTHM [None]
  - OXYGEN SATURATION DECREASED [None]
  - SUICIDE ATTEMPT [None]
